FAERS Safety Report 5984716-1 (Version None)
Quarter: 2008Q4

REPORT INFORMATION
  Report Type: 
  Country: None (occurrence: None)
  Receive Date: 20081202
  Receipt Date: 20081117
  Transmission Date: 20090506
  Serious: Yes (Hospitalization)
  Sender: FDA-Public Use
  Company Number: THYR-1000105

PATIENT
  Age: 70 Year
  Sex: Male

DRUGS (7)
  1. THYROGEN [Suspect]
     Indication: SCAN THYROID GLAND
     Dates: start: 20081101, end: 20081102
  2. LEVOTHYROXINE SODIUM [Concomitant]
  3. ART (DIACEREIN) [Concomitant]
  4. VICTAN (ETHYL LOFLAZEPATE) [Concomitant]
  5. IMOVANE (ZOPICLONE) [Concomitant]
  6. ZOCOR [Concomitant]
  7. KARDEGIC (ACETYLSALICYLATE LYSINE, ACETYLSALICYLIC ACID) [Concomitant]

REACTIONS (2)
  - ERYTHEMA [None]
  - RASH PAPULAR [None]
